FAERS Safety Report 21308377 (Version 1)
Quarter: 2022Q3

REPORT INFORMATION
  Report Type: Spontaneous
  Country: US (occurrence: None)
  Receive Date: 20220908
  Receipt Date: 20220908
  Transmission Date: 20221026
  Serious: Yes (Disabling)
  Sender: FDA-Public Use
  Company Number: None

PATIENT
  Age: 76 Year
  Sex: Male

DRUGS (15)
  1. ABILIFY [Suspect]
     Active Substance: ARIPIPRAZOLE
     Indication: Schizophrenia
     Dosage: 20 MG 1 TABLET EVERY DAY  MOUTH??REDUCE TO 15 MG  JULY-2022
     Route: 048
     Dates: start: 2008
  2. BESYLATE [Concomitant]
  3. ARIPIPRAZOLE [Concomitant]
     Active Substance: ARIPIPRAZOLE
  4. ATORVASTATIN [Concomitant]
  5. BUPROPION [Concomitant]
     Active Substance: BUPROPION
  6. CARBOXYMETHYLCELLULOSE [Concomitant]
     Active Substance: CARBOXYMETHYLCELLULOSE
  7. CETIRIZINE HCL [Concomitant]
     Active Substance: CETIRIZINE HYDROCHLORIDE
  8. ELIQUIS (APIXABA) [Concomitant]
  9. FERROUS SULFATE [Concomitant]
     Active Substance: FERROUS SULFATE
  10. FLUTICASONE PROPIONATE [Concomitant]
     Active Substance: FLUTICASONE PROPIONATE
  11. IPRATROPIUM BR [Concomitant]
  12. NITOSTAT [Concomitant]
  13. PANTOPRAZOLE [Concomitant]
     Active Substance: PANTOPRAZOLE
  14. SILDENAFIL [Concomitant]
     Active Substance: SILDENAFIL
  15. SOTALOL [Concomitant]
     Active Substance: SOTALOL

REACTIONS (10)
  - Drooling [None]
  - Dizziness [None]
  - Fall [None]
  - Dizziness [None]
  - Somnolence [None]
  - Salivary hypersecretion [None]
  - Temperature intolerance [None]
  - Fatigue [None]
  - Vision blurred [None]
  - Constipation [None]
